FAERS Safety Report 9291958 (Version 1)
Quarter: 2012Q4

REPORT INFORMATION
  Report Type: Spontaneous
  Country: US (occurrence: None)
  Receive Date: 20121026
  Receipt Date: 20121026
  Transmission Date: 20130627
  Serious: Yes (Hospitalization, Other)
  Sender: FDA-Public Use
  Company Number: 2012-1918

PATIENT
  Age: 53 Year
  Sex: Male

DRUGS (2)
  1. SOMATULINE DEPOT [Suspect]
     Indication: ACROMEGALY
     Dosage: 90 mg, 1 x 28 days (90 mg, 1 in 28 D), Subcutaneous
     Dates: start: 20120229
  2. SOMATULINE DEPOT [Suspect]
     Indication: ACROMEGALY
     Dates: start: 20120229

REACTIONS (3)
  - Cerebrovascular accident [None]
  - Nephrolithiasis [None]
  - Brain mass [None]
